FAERS Safety Report 17336669 (Version 1)
Quarter: 2020Q1

REPORT INFORMATION
  Report Type: Spontaneous
  Country: FR (occurrence: FR)
  Receive Date: 20200128
  Receipt Date: 20200128
  Transmission Date: 20200409
  Serious: Yes (Hospitalization)
  Sender: FDA-Public Use
  Company Number: FR-PFIZER INC-2020033444

PATIENT
  Age: 38 Year
  Sex: Female

DRUGS (3)
  1. AROMASINE [Suspect]
     Active Substance: EXEMESTANE
     Indication: BREAST CANCER METASTATIC
     Dosage: 25 MG, 1X/DAY
     Route: 048
     Dates: start: 201810
  2. IBRANCE [Suspect]
     Active Substance: PALBOCICLIB
     Indication: BREAST CANCER METASTATIC
     Dosage: 125 MG, 1X/DAY (3 WEEKS OUT OF 4)
     Route: 048
     Dates: start: 201810
  3. DECAPEPTYL [TRIPTORELIN EMBONATE] [Suspect]
     Active Substance: TRIPTORELIN PAMOATE
     Indication: THERAPEUTIC OVARIAN SUPPRESSION
     Dosage: 1 DF, MONTHLY
     Route: 030
     Dates: start: 201810

REACTIONS (3)
  - Condition aggravated [Recovered/Resolved]
  - Maternal exposure during pregnancy [Recovered/Resolved]
  - Intentional product misuse [Unknown]

NARRATIVE: CASE EVENT DATE: 201810
